FAERS Safety Report 4398983-1 (Version None)
Quarter: 2004Q3

REPORT INFORMATION
  Report Type: 
  Country: None (occurrence: None)
  Receive Date: 20040712
  Receipt Date: 20040622
  Transmission Date: 20050211
  Serious: Yes (Other)
  Sender: FDA-Public Use
  Company Number: USA040670795

PATIENT
  Age: 53 Year
  Sex: Female
  Weight: 69 kg

DRUGS (7)
  1. HUMULIN R [Suspect]
     Dates: start: 19820101
  2. HUMALOG [Suspect]
     Dates: start: 19960101
  3. HUMULIN U [Suspect]
  4. HUMULIN N [Suspect]
     Dates: start: 19820101
  5. ILETIN I [Suspect]
     Dates: end: 19820101
  6. NPH ILETIN I (BEEF-PORK) [Suspect]
     Dates: start: 19740101
  7. LANTUS [Concomitant]

REACTIONS (6)
  - BLOOD GLUCOSE DECREASED [None]
  - BLOOD GLUCOSE INCREASED [None]
  - INJECTION SITE REACTION [None]
  - LIPOATROPHY [None]
  - MULTIPLE ALLERGIES [None]
  - PARESIS [None]
